FAERS Safety Report 5150988-9 (Version None)
Quarter: 2006Q4

REPORT INFORMATION
  Report Type: 
  Country: None (occurrence: None)
  Receive Date: 20061115
  Receipt Date: 20060926
  Transmission Date: 20070319
  Serious: Yes (Other)
  Sender: FDA-Public Use
  Company Number: DE-ELI_LILLY_AND_COMPANY-DE200609006562

PATIENT
  Age: 46 Year
  Sex: Male
  Weight: 130 kg

DRUGS (8)
  1. CYMBALTA [Suspect]
     Indication: DEPRESSION
     Dosage: 30 MG, DAILY (1/D)
     Route: 048
     Dates: start: 20060701
  2. CYMBALTA [Interacting]
     Dosage: 60 MG, 2/D
     Route: 048
     Dates: end: 20060901
  3. CYMBALTA [Interacting]
     Dosage: 60 MG, DAILY (1/D)
     Route: 048
  4. ACCUZIDE [Concomitant]
  5. OLMETEC  /GFR/ [Concomitant]
  6. LEVOTHYROXINE SODIUM [Concomitant]
     Indication: HYPOTHYROIDISM
     Dosage: 50 UG, UNK
     Route: 048
  7. ASPIRIN [Interacting]
     Indication: FACTOR V LEIDEN MUTATION
     Dosage: 100 MG, UNK
     Route: 048
  8. PRAVASTATIN [Concomitant]

REACTIONS (10)
  - COLITIS ULCERATIVE [None]
  - DIARRHOEA HAEMORRHAGIC [None]
  - DRUG INTERACTION POTENTIATION [None]
  - GASTROENTERITIS ROTAVIRUS [None]
  - HAEMOGLOBIN DECREASED [None]
  - HAEMORRHAGE [None]
  - NAUSEA [None]
  - PLATELET COUNT DECREASED [None]
  - PYREXIA [None]
  - RED BLOOD CELL SEDIMENTATION RATE INCREASED [None]
